FAERS Safety Report 9972941 (Version 2)
Quarter: 2014Q1

REPORT INFORMATION
  Report Type: Spontaneous
  Country: FR (occurrence: FR)
  Receive Date: 20140306
  Receipt Date: 20140320
  Transmission Date: 20141002
  Serious: Yes (Other)
  Sender: FDA-Public Use
  Company Number: FR-ALLERGAN-1403937US

PATIENT
  Age: 80 Year
  Sex: Male

DRUGS (6)
  1. LUMIGAN [Suspect]
     Indication: GLAUCOMA
     Dosage: 1 DROP IN EACH EYE DAILY
     Route: 047
     Dates: start: 20120412
  2. ALPHAGAN [Concomitant]
     Dosage: 1 GTT, QD
  3. FLECAINE [Concomitant]
     Indication: HYPERTENSION
  4. KENZEN [Concomitant]
     Indication: HYPERTENSION
  5. SEREVENT [Concomitant]
     Indication: ASTHMA
  6. SPIRIVA [Concomitant]
     Indication: ASTHMA

REACTIONS (1)
  - Asthmatic crisis [Recovering/Resolving]
